FAERS Safety Report 7213868-0 (Version None)
Quarter: 2011Q1

REPORT INFORMATION
  Report Type: 
  Country: None (occurrence: None)
  Receive Date: 20110106
  Receipt Date: 20101229
  Transmission Date: 20110831
  Serious: Yes (Death, Hospitalization)
  Sender: FDA-Public Use
  Company Number: KP-TYCO HEALTHCARE/MALLINCKRODT-T201002483

PATIENT
  Sex: Female

DRUGS (1)
  1. EXALGO [Suspect]
     Indication: CANCER PAIN
     Dosage: 8 MG, QD
     Route: 048
     Dates: start: 20101123, end: 20101212

REACTIONS (3)
  - VOMITING [None]
  - PRE-EXISTING DISEASE [None]
  - NAUSEA [None]
